FAERS Safety Report 8891829 (Version 2)
Quarter: 2012Q4

REPORT INFORMATION
  Report Type: 
  Country: US (occurrence: None)
  Receive Date: 20121108
  Receipt Date: 20121127
  Transmission Date: 20130627
  Serious: Yes (Death, Hospitalization)
  Sender: FDA-Public Use
  Company Number: None

PATIENT
  Age: 71 Year
  Sex: Male
  Weight: 50.8 kg

DRUGS (1)
  1. FUROSEMIDE [Suspect]
     Indication: FLUID RETENTION
     Route: 040
     Dates: start: 20120912, end: 20120912

REACTIONS (10)
  - General physical health deterioration [None]
  - Pneumonia [None]
  - Product quality issue [None]
  - Photophobia [None]
  - Photophobia [None]
  - Mental status changes [None]
  - Pain [None]
  - Visual impairment [None]
  - Lower respiratory tract infection [None]
  - Product contamination microbial [None]
